FAERS Safety Report 7789050-5 (Version None)
Quarter: 2011Q3

REPORT INFORMATION
  Report Type: 
  Country: None (occurrence: None)
  Receive Date: 20110930
  Receipt Date: 20110921
  Transmission Date: 20111222
  Serious: Yes (Hospitalization)
  Sender: FDA-Public Use
  Company Number: JP-PFIZER INC-2011228757

PATIENT
  Age: 86 Year
  Sex: Male

DRUGS (2)
  1. ESTRACYT [Suspect]
     Dosage: 313.4 MG/DAY
     Route: 048
     Dates: start: 20110603, end: 20110829
  2. ESTRACYT [Suspect]
     Dosage: 626.8 MG/DAY
     Route: 048
     Dates: start: 20110830, end: 20110915

REACTIONS (1)
  - CARDIAC FAILURE [None]
